FAERS Safety Report 25525522 (Version 1)
Quarter: 2025Q3

REPORT INFORMATION
  Report Type: Spontaneous
  Country: CN (occurrence: CN)
  Receive Date: 20250707
  Receipt Date: 20250707
  Transmission Date: 20251021
  Serious: Yes (Other)
  Sender: PFIZER
  Company Number: CN-PFIZER INC-PV202500078211

PATIENT
  Sex: Female

DRUGS (1)
  1. CRIZOTINIB [Suspect]
     Active Substance: CRIZOTINIB
     Indication: Lung carcinoma cell type unspecified recurrent
     Dosage: 250 MG, 2X/DAY
     Route: 048
     Dates: start: 20180101, end: 20250624

REACTIONS (1)
  - Myelosuppression [Recovering/Resolving]
